FAERS Safety Report 9772769 (Version 1)
Quarter: 2013Q4

REPORT INFORMATION
  Report Type: Spontaneous
  Country: US (occurrence: US)
  Receive Date: 20131219
  Receipt Date: 20131219
  Transmission Date: 20140711
  Serious: No
  Sender: FDA-Public Use
  Company Number: US-B.I. PHARMACEUTICALS,INC./RIDGEFIELD-2013-BI-41124BP

PATIENT
  Age: 69 Year
  Sex: Female

DRUGS (7)
  1. SPIRIVA [Suspect]
     Indication: CHRONIC OBSTRUCTIVE PULMONARY DISEASE
     Dosage: 18 MCG
     Route: 055
     Dates: start: 2008
  2. PRO AIR [Concomitant]
     Indication: ASTHMA
     Dosage: FORMULATION: INHALATION SOLUTION
     Route: 055
  3. ALBUTEROL [Concomitant]
     Indication: ASTHMA
     Route: 055
  4. THEOPHYLLINE [Concomitant]
     Indication: ASTHMA
     Route: 048
  5. ASPIRIN [Concomitant]
     Indication: ANTICOAGULANT THERAPY
     Dosage: 81 MG
     Route: 048
  6. QVAR [Concomitant]
     Indication: ASTHMA
     Route: 055
  7. SYMBICORT [Concomitant]
     Indication: ASTHMA
     Route: 043

REACTIONS (3)
  - Incorrect route of drug administration [Recovered/Resolved]
  - Vertigo [Not Recovered/Not Resolved]
  - Neuropathy peripheral [Not Recovered/Not Resolved]
